FAERS Safety Report 9191394 (Version 1)
Quarter: 2013Q1

REPORT INFORMATION
  Report Type: Other
  Country: GB (occurrence: GB)
  Receive Date: 20130326
  Receipt Date: 20130326
  Transmission Date: 20140127
  Serious: Yes (Other)
  Sender: FDA-Public Use
  Company Number: GB-WATSON-2013-04449

PATIENT
  Age: 70 Year
  Sex: Female

DRUGS (1)
  1. CLARITHROMYCIN (UNKNOWN) [Suspect]
     Indication: LOWER RESPIRATORY TRACT INFECTION
     Dosage: 500 MG. 1 WEEK COURSE, STOPPED TAKING IT AFTER 2 DAYS
     Route: 065
     Dates: start: 201302, end: 201302

REACTIONS (2)
  - Chest discomfort [Recovered/Resolved]
  - Palpitations [Recovered/Resolved]
